FAERS Safety Report 11135619 (Version 1)
Quarter: 2015Q2

REPORT INFORMATION
  Report Type: Report from Study
  Country: BR (occurrence: BR)
  Receive Date: 20150526
  Receipt Date: 20150526
  Transmission Date: 20150821
  Serious: Yes (Hospitalization, Disabling, Other)
  Sender: FDA-Public Use
  Company Number: BR-ABBVIE-11P-020-0706143-00

PATIENT
  Age: 59 Year
  Sex: Female
  Weight: 103 kg

DRUGS (10)
  1. CALCIUM +VIT D [Concomitant]
     Active Substance: CALCIUM\VITAMIN D
     Indication: PRODUCT USED FOR UNKNOWN INDICATION
  2. PREDNISONE. [Concomitant]
     Active Substance: PREDNISONE
     Indication: RHEUMATIC DISORDER
     Route: 048
     Dates: start: 1995
  3. LOSARTAN [Concomitant]
     Active Substance: LOSARTAN
     Indication: HYPERTENSION
     Route: 048
     Dates: start: 2005
  4. HUMIRA [Suspect]
     Active Substance: ADALIMUMAB
     Indication: RHEUMATOID ARTHRITIS
     Route: 058
     Dates: start: 20070709
  5. HUMIRA [Suspect]
     Active Substance: ADALIMUMAB
     Indication: ANKYLOSING SPONDYLITIS
  6. METHOTREXATE [Concomitant]
     Active Substance: METHOTREXATE
     Indication: RHEUMATOID ARTHRITIS
     Route: 048
     Dates: start: 2010
  7. LOSARTAN POTASSIUM. [Concomitant]
     Active Substance: LOSARTAN POTASSIUM
     Indication: HYPERTENSION
  8. INDOMETACIN [Concomitant]
     Active Substance: INDOMETHACIN
     Indication: RHEUMATIC DISORDER
     Route: 048
     Dates: start: 1995
  9. NORTRIPTYLINE [Concomitant]
     Active Substance: NORTRIPTYLINE
     Indication: RHEUMATIC DISORDER
     Route: 048
     Dates: start: 1995
  10. RANITIDINE [Concomitant]
     Active Substance: RANITIDINE\RANITIDINE HYDROCHLORIDE
     Indication: RHEUMATIC DISORDER
     Route: 048
     Dates: start: 1995

REACTIONS (11)
  - Joint crepitation [Unknown]
  - Foot fracture [Recovered/Resolved]
  - Venous perforation [Recovered/Resolved]
  - Body height decreased [Unknown]
  - Pain in extremity [Recovered/Resolved]
  - Paraesthesia [Unknown]
  - Abasia [Recovered/Resolved]
  - Patient-device incompatibility [Recovered/Resolved]
  - Ankle fracture [Unknown]
  - Gait disturbance [Recovered/Resolved]
  - Spinal deformity [Unknown]

NARRATIVE: CASE EVENT DATE: 2010
